FAERS Safety Report 23956470 (Version 1)
Quarter: 2024Q2

REPORT INFORMATION
  Report Type: Report from Study
  Country: FR (occurrence: FR)
  Receive Date: 20240610
  Receipt Date: 20240610
  Transmission Date: 20240716
  Serious: Yes (Hospitalization)
  Sender: FDA-Public Use
  Company Number: FR-INSMED, INC.-2024-02202-FR

PATIENT
  Sex: Female
  Weight: 39 kg

DRUGS (1)
  1. ARIKAYCE [Suspect]
     Active Substance: AMIKACIN
     Indication: Atypical mycobacterial infection
     Dosage: UNK, UNK
     Route: 055
     Dates: start: 20231123

REACTIONS (3)
  - Hospitalisation [Unknown]
  - Drug intolerance [Unknown]
  - Malaise [Not Recovered/Not Resolved]
